FAERS Safety Report 17295014 (Version 3)
Quarter: 2020Q1

REPORT INFORMATION
  Report Type: Spontaneous
  Country: US (occurrence: US)
  Receive Date: 20200121
  Receipt Date: 20200330
  Transmission Date: 20200409
  Serious: No
  Sender: FDA-Public Use
  Company Number: US-PFIZER INC-2020023934

PATIENT
  Age: 51 Year
  Sex: Male
  Weight: 113.4 kg

DRUGS (3)
  1. VIAGRA [Suspect]
     Active Substance: SILDENAFIL CITRATE
     Indication: ERECTILE DYSFUNCTION
     Dosage: 100 MG, AS NEEDED (ABOUT 1 TO 2 HOURS BEFORE SEX)
     Dates: start: 201006
  2. CAVERJECT [Concomitant]
     Active Substance: ALPROSTADIL
     Dosage: 40 MG, UNK
     Dates: start: 201502
  3. VIAGRA [Suspect]
     Active Substance: SILDENAFIL CITRATE
     Dosage: 100 MG, AS NEEDED[100MG BY MOUTH DAILY AS NEEDED]
     Route: 048
     Dates: end: 2018

REACTIONS (1)
  - Drug ineffective [Recovered/Resolved]

NARRATIVE: CASE EVENT DATE: 201006
